FAERS Safety Report 6416755-0 (Version None)
Quarter: 2009Q4

REPORT INFORMATION
  Report Type: 
  Country: None (occurrence: None)
  Receive Date: 20091022
  Receipt Date: 20091015
  Transmission Date: 20100525
  Serious: Yes (Hospitalization)
  Sender: FDA-Public Use
  Company Number: DSA_41845_2009

PATIENT
  Sex: Female

DRUGS (12)
  1. XENAZINE [Suspect]
     Indication: TARDIVE DYSKINESIA
     Dosage: (12.5 MG QD)
     Dates: start: 20090828, end: 20090929
  2. SEROQUEL [Concomitant]
  3. LITHIUM CARBONATE [Concomitant]
  4. SENNA-S /01035001/ [Concomitant]
  5. OXYBUTYNIN [Concomitant]
  6. LORTAB [Concomitant]
  7. NEURONTIN [Concomitant]
  8. PHENERGAN HCL [Concomitant]
  9. TYLENOL (CAPLET) [Concomitant]
  10. LEVOTHYROXINE SODIUM [Concomitant]
  11. OMEPRAZOLE [Concomitant]
  12. MACROBID /00024401/ [Concomitant]

REACTIONS (4)
  - ANGER [None]
  - BIPOLAR DISORDER [None]
  - CONDITION AGGRAVATED [None]
  - VOMITING [None]
